FAERS Safety Report 9293802 (Version 2)
Quarter: 2013Q2

REPORT INFORMATION
  Report Type: Spontaneous
  Country: US (occurrence: US)
  Receive Date: 20130516
  Receipt Date: 20130626
  Transmission Date: 20140414
  Serious: Yes (Hospitalization, Other)
  Sender: FDA-Public Use
  Company Number: PHHY2013US048086

PATIENT
  Age: 27 Year
  Sex: Male

DRUGS (7)
  1. THIAMAZOLE [Suspect]
     Dosage: 30 MG, Q8H
     Route: 048
  2. POTASSIUM IODIDE [Concomitant]
  3. HYDROCORTISONE [Concomitant]
     Dosage: 100 MG, Q8H
     Route: 042
  4. ESMOLOL [Concomitant]
     Dosage: 3 MG/MIN
  5. SODIUM BICARBONATE [Concomitant]
  6. CEFEPIME [Concomitant]
  7. VANCOMYCIN [Concomitant]

REACTIONS (1)
  - Hypoglycaemia [Recovered/Resolved]
